FAERS Safety Report 11085698 (Version 2)
Quarter: 2015Q2

REPORT INFORMATION
  Report Type: Spontaneous
  Country: US (occurrence: US)
  Receive Date: 20150503
  Receipt Date: 20150525
  Transmission Date: 20150821
  Serious: Yes (Other)
  Sender: FDA-Public Use
  Company Number: US-JNJFOC-20150401450

PATIENT
  Age: 66 Year
  Sex: Female
  Weight: 55.48 kg

DRUGS (12)
  1. LYRICA [Suspect]
     Active Substance: PREGABALIN
     Indication: FIBROMYALGIA
     Dosage: 25 MG IN THE MORNING, 50 MG IN THE EVENING
     Route: 048
     Dates: start: 20150105
  2. VITAMIN D3 [Concomitant]
     Active Substance: CHOLECALCIFEROL
     Route: 048
  3. CYTOMEL [Concomitant]
     Active Substance: LIOTHYRONINE SODIUM
     Route: 048
  4. MIRAPEX [Concomitant]
     Active Substance: PRAMIPEXOLE DIHYDROCHLORIDE
     Dosage: EVERY EVENING
     Route: 048
  5. VALIUM [Concomitant]
     Active Substance: DIAZEPAM
     Indication: ANXIETY
     Route: 048
  6. PROAIR HFA [Concomitant]
     Active Substance: ALBUTEROL SULFATE
     Route: 065
     Dates: start: 20140123
  7. PENLAC [Concomitant]
     Active Substance: CICLOPIROX
     Dosage: FOR 3 MONTHS
     Route: 061
     Dates: start: 20140324
  8. ULTRAM [Suspect]
     Active Substance: TRAMADOL HYDROCHLORIDE
     Indication: PAIN
     Dosage: EVERY 8 HRS AS NEEDED
     Route: 048
     Dates: start: 20150112
  9. COLACE [Concomitant]
     Active Substance: DOCUSATE SODIUM
     Route: 048
  10. LIDODERM [Concomitant]
     Active Substance: LIDOCAINE
     Route: 062
     Dates: start: 20140709
  11. ZOSTAVAX [Concomitant]
     Active Substance: VARICELLA-ZOSTER VIRUS STRAIN OKA/MERCK LIVE ANTIGEN
     Route: 065
     Dates: start: 20140910
  12. REQUIP [Concomitant]
     Active Substance: ROPINIROLE HYDROCHLORIDE
     Route: 048
     Dates: start: 20140910

REACTIONS (5)
  - Akathisia [Recovering/Resolving]
  - Paraesthesia [Unknown]
  - Burning sensation [Unknown]
  - Blepharitis [Unknown]
  - Drug dependence [Unknown]

NARRATIVE: CASE EVENT DATE: 20150119
